FAERS Safety Report 17562124 (Version 1)
Quarter: 2020Q1

REPORT INFORMATION
  Report Type: Spontaneous
  Country: GB (occurrence: GB)
  Receive Date: 20200319
  Receipt Date: 20200319
  Transmission Date: 20200409
  Serious: Yes (Hospitalization)
  Sender: FDA-Public Use
  Company Number: GB-MYLANLABS-2020M1028463

PATIENT
  Age: 72 Year
  Sex: Female

DRUGS (6)
  1. METFORMIN [Concomitant]
     Active Substance: METFORMIN HYDROCHLORIDE
     Dosage: IN THE MORNING
     Route: 048
  2. ATORVASTATIN [Concomitant]
     Active Substance: ATORVASTATIN
     Dosage: AT NIGHT
     Route: 048
  3. LANSOPRAZOLE. [Suspect]
     Active Substance: LANSOPRAZOLE
     Indication: PRODUCT USED FOR UNKNOWN INDICATION
     Dosage: IN THE MORNING
     Route: 048
     Dates: end: 20200212
  4. TRAMADOL. [Concomitant]
     Active Substance: TRAMADOL
     Dosage: 50MG-100MG QDS PRN
     Route: 050
  5. DICLOFENAC [Concomitant]
     Active Substance: DICLOFENAC
     Dosage: APPLY THREE TIMES DAILY
     Route: 061
  6. CLOPIDOGREL [Concomitant]
     Active Substance: CLOPIDOGREL BISULFATE
     Dosage: IN THE MORNING
     Route: 048

REACTIONS (3)
  - Fall [Recovering/Resolving]
  - Hypotension [Recovering/Resolving]
  - Hyponatraemia [Recovering/Resolving]

NARRATIVE: CASE EVENT DATE: 20200208
